FAERS Safety Report 8370863-6 (Version None)
Quarter: 2012Q2

REPORT INFORMATION
  Report Type: 
  Country: None (occurrence: None)
  Receive Date: 20120518
  Receipt Date: 20120220
  Transmission Date: 20120825
  Serious: No
  Sender: FDA-Public Use
  Company Number: US-ASTRAZENECA-2012SE13106

PATIENT
  Sex: Male

DRUGS (1)
  1. PRILOSEC OTC [Suspect]
     Indication: SUICIDE ATTEMPT
     Route: 048
     Dates: start: 20120220, end: 20120220

REACTIONS (2)
  - SUICIDE ATTEMPT [None]
  - INCORRECT DOSE ADMINISTERED [None]
